FAERS Safety Report 26112639 (Version 1)
Quarter: 2025Q4

REPORT INFORMATION
  Report Type: Spontaneous
  Country: US (occurrence: None)
  Receive Date: 20251202
  Receipt Date: 20251202
  Transmission Date: 20260117
  Serious: Yes (Hospitalization)
  Sender: FDA-CTU
  Company Number: None

PATIENT
  Sex: Male

DRUGS (11)
  1. VYNDAMAX [Suspect]
     Active Substance: TAFAMIDIS
     Indication: Acquired ATTR amyloidosis
     Dosage: TAKE 1 CAPSULE BY MOUTH DAILY? SWALLOW WHOLE
     Route: 048
     Dates: start: 20230615
  2. ALBUTEROL SULFATE [Concomitant]
     Active Substance: ALBUTEROL SULFATE
  3. ATORVASTATIN TAB 10MG [Concomitant]
  4. ELIQUIS [Concomitant]
     Active Substance: APIXABAN
  5. FUROSEMIDE [Concomitant]
     Active Substance: FUROSEMIDE
  6. IBUPROFEN TAB 600MG [Concomitant]
  7. LATANOPROST SOL 0.005% [Concomitant]
  8. LEVETIRACETA TAB 500MG [Concomitant]
  9. METOPROL TAR TAB 50MG [Concomitant]
  10. OMEPRAZOLE [Concomitant]
     Active Substance: OMEPRAZOLE
  11. ROPINIROLE TAB 2MG ER [Concomitant]

REACTIONS (1)
  - Pneumonia [None]
